FAERS Safety Report 24966232 (Version 1)
Quarter: 2025Q1

REPORT INFORMATION
  Report Type: Spontaneous
  Country: US (occurrence: US)
  Receive Date: 20250213
  Receipt Date: 20250213
  Transmission Date: 20250408
  Serious: Yes (Hospitalization, Other)
  Sender: SANOFI AVENTIS
  Company Number: US-SA-2025SA042687

PATIENT
  Sex: Female
  Weight: 55 kg

DRUGS (11)
  1. DUPIXENT [Suspect]
     Active Substance: DUPILUMAB
     Indication: Asthma
     Dosage: 300 MG, QOW
     Route: 058
  2. BIOTIN [Concomitant]
     Active Substance: BIOTIN
  3. MAGNESIUM [Concomitant]
     Active Substance: MAGNESIUM
  4. CALCIUM [Concomitant]
     Active Substance: CALCIUM
  5. POTASSIUM GLUCONATE [Concomitant]
     Active Substance: POTASSIUM GLUCONATE
  6. PROLIA [Concomitant]
     Active Substance: DENOSUMAB
  7. RETINOL [Concomitant]
     Active Substance: RETINOL
  8. VITAMIN C [Concomitant]
     Active Substance: ASCORBIC ACID
  9. ERGOCALCIFEROL [Concomitant]
     Active Substance: ERGOCALCIFEROL
  10. VITAMIN B COMPLEX [DEXPANTHENOL;NICOTINAMIDE;PYRIDOXINE HYDROCHLORIDE; [Concomitant]
  11. VITAMIN D3 [Concomitant]
     Active Substance: CHOLECALCIFEROL

REACTIONS (3)
  - Diverticulitis [Unknown]
  - Hospitalisation [Unknown]
  - Hypertension [Unknown]

NARRATIVE: CASE EVENT DATE: 20250101
